FAERS Safety Report 7689100-0 (Version None)
Quarter: 2011Q3

REPORT INFORMATION
  Report Type: 
  Country: None (occurrence: None)
  Receive Date: 20110817
  Receipt Date: 20110810
  Transmission Date: 20111222
  Serious: Yes (Death, Hospitalization)
  Sender: FDA-Public Use
  Company Number: JP-MERCK-1107USA03317

PATIENT
  Age: 82 Year
  Sex: Male

DRUGS (9)
  1. AMARYL [Concomitant]
     Route: 048
     Dates: start: 20110624
  2. OLMESARTAN MEDOXOMIL [Concomitant]
     Route: 048
     Dates: start: 20070509, end: 20110710
  3. JANUVIA [Suspect]
     Indication: DIABETES MELLITUS
     Route: 048
     Dates: start: 20110326, end: 20110710
  4. GLYCORAN [Concomitant]
     Route: 048
     Dates: start: 20080507, end: 20110710
  5. CRESTOR [Suspect]
     Indication: HYPERLIPIDAEMIA
     Route: 048
     Dates: start: 20070509, end: 20110710
  6. DIART [Concomitant]
     Dosage: DAILY DOSAGE UNKNOWN
     Route: 048
     Dates: start: 20070802, end: 20110710
  7. TAMSULOSIN HCL [Concomitant]
     Dosage: DAILY DOSAGE UNKNOWN
     Route: 048
     Dates: start: 20061205, end: 20110710
  8. AMARYL [Concomitant]
     Indication: DIABETES MELLITUS
     Route: 048
     Dates: start: 20080226, end: 20110624
  9. ALOSITOL [Concomitant]
     Route: 048
     Dates: start: 20070509, end: 20110710

REACTIONS (4)
  - INTERSTITIAL LUNG DISEASE [None]
  - CARDIAC FAILURE [None]
  - DECREASED APPETITE [None]
  - HICCUPS [None]
